FAERS Safety Report 16025352 (Version 3)
Quarter: 2019Q2

REPORT INFORMATION
  Report Type: Spontaneous
  Country: US (occurrence: US)
  Receive Date: 20190301
  Receipt Date: 20190417
  Transmission Date: 20190711
  Serious: Yes (Hospitalization, Other)
  Sender: FDA-Public Use
  Company Number: US-ASTRAZENECA-2018SF64809

PATIENT
  Sex: Male
  Weight: 96.6 kg

DRUGS (15)
  1. PRILOSEC [Suspect]
     Active Substance: OMEPRAZOLE MAGNESIUM
     Indication: GASTROOESOPHAGEAL REFLUX DISEASE
     Route: 048
     Dates: start: 19990101, end: 20181201
  2. LEVOTHYROXINE. [Concomitant]
     Active Substance: LEVOTHYROXINE
     Indication: HYPOTHYROIDISM
     Dates: start: 201007, end: 201203
  3. SIMVASTATIN. [Concomitant]
     Active Substance: SIMVASTATIN
     Indication: BLOOD CHOLESTEROL
     Dates: start: 201007, end: 201603
  4. PREVACID [Suspect]
     Active Substance: LANSOPRAZOLE
     Route: 065
     Dates: start: 19990101, end: 20181201
  5. FLECAINIDE ACETATE. [Concomitant]
     Active Substance: FLECAINIDE ACETATE
     Indication: ARRHYTHMIA
     Dates: start: 201609, end: 201612
  6. PRILOSEC [Suspect]
     Active Substance: OMEPRAZOLE MAGNESIUM
     Indication: GASTROOESOPHAGEAL REFLUX DISEASE
     Route: 048
     Dates: start: 201007, end: 201112
  7. METOCLOPRAMIDE. [Concomitant]
     Active Substance: METOCLOPRAMIDE
     Indication: GASTROOESOPHAGEAL REFLUX DISEASE
     Dates: start: 201505, end: 201506
  8. NEXIUM [Suspect]
     Active Substance: ESOMEPRAZOLE MAGNESIUM
     Route: 048
  9. NEXIUM 24HR [Suspect]
     Active Substance: ESOMEPRAZOLE MAGNESIUM
     Route: 048
  10. PRILOSEC OTC [Suspect]
     Active Substance: OMEPRAZOLE MAGNESIUM
     Route: 048
  11. PREVACID IV [Suspect]
     Active Substance: LANSOPRAZOLE
     Route: 065
  12. PREVACID 24 HR [Suspect]
     Active Substance: LANSOPRAZOLE
     Route: 065
  13. ATENOLOL. [Concomitant]
     Active Substance: ATENOLOL
     Indication: HYPERTENSION
     Dates: start: 201007, end: 201106
  14. FUROSEMIDE. [Concomitant]
     Active Substance: FUROSEMIDE
     Indication: RENAL DISORDER
     Dates: start: 201007, end: 201101
  15. NIASPAN [Concomitant]
     Active Substance: NIACIN
     Indication: BLOOD CHOLESTEROL
     Dates: start: 201007, end: 201105

REACTIONS (2)
  - Chronic kidney disease [Unknown]
  - Renal injury [Unknown]
